FAERS Safety Report 24679379 (Version 2)
Quarter: 2024Q4

REPORT INFORMATION
  Report Type: Report from Study
  Country: JP (occurrence: JP)
  Receive Date: 20241129
  Receipt Date: 20241204
  Transmission Date: 20250114
  Serious: Yes (Other)
  Sender: ACCORD
  Company Number: JP-Accord-457499

PATIENT
  Age: 39 Year
  Sex: Female

DRUGS (3)
  1. CISPLATIN [Suspect]
     Active Substance: CISPLATIN
     Indication: Cervix carcinoma
     Dosage: SECOND COURSE
  2. PACLITAXEL [Concomitant]
     Active Substance: PACLITAXEL
     Indication: Cervix carcinoma
     Dosage: SECOND COURSE
  3. PEMBROLIZUMAB [Concomitant]
     Active Substance: PEMBROLIZUMAB
     Indication: Cervix carcinoma
     Dosage: SECOND COURSE

REACTIONS (5)
  - Anaphylactic reaction [Recovered/Resolved]
  - Urticaria [Unknown]
  - Respiratory distress [Unknown]
  - Vomiting [Unknown]
  - Abdominal pain [Unknown]
